FAERS Safety Report 7273856-5 (Version None)
Quarter: 2011Q1

REPORT INFORMATION
  Report Type: 
  Country: None (occurrence: None)
  Receive Date: 20110203
  Receipt Date: 20110125
  Transmission Date: 20110831
  Serious: Yes (Other)
  Sender: FDA-Public Use
  Company Number: US-BAYER-2010-004255

PATIENT
  Age: 69 Year
  Sex: Female
  Weight: 41.361 kg

DRUGS (3)
  1. ACETYLSALICYLIC ACID [Concomitant]
  2. FOSAMAX [Concomitant]
  3. AVELOX [Suspect]
     Indication: PNEUMONIA
     Dosage: 400 MG, QD
     Route: 048
     Dates: start: 20101116

REACTIONS (1)
  - SYNCOPE [None]
